FAERS Safety Report 9271027 (Version 2)
Quarter: 2013Q2

REPORT INFORMATION
  Report Type: Report from Study
  Country: US (occurrence: US)
  Receive Date: 20130506
  Receipt Date: 20130508
  Transmission Date: 20140414
  Serious: Yes (Hospitalization)
  Sender: FDA-Public Use
  Company Number: US-JNJFOC-20130413950

PATIENT
  Age: 17 Year
  Sex: Female
  Weight: 48.9 kg

DRUGS (3)
  1. REMICADE [Suspect]
     Indication: CROHN^S DISEASE
     Route: 042
     Dates: start: 20050531
  2. HUMIRA [Concomitant]
     Route: 065
     Dates: start: 20070827
  3. PROBIOTICS [Concomitant]
     Route: 065

REACTIONS (2)
  - Crohn^s disease [Recovered/Resolved]
  - Suicidal ideation [Recovered/Resolved]
